FAERS Safety Report 24548399 (Version 1)
Quarter: 2024Q4

REPORT INFORMATION
  Report Type: Spontaneous
  Country: VN (occurrence: VN)
  Receive Date: 20241025
  Receipt Date: 20241025
  Transmission Date: 20250115
  Serious: Yes (Hospitalization)
  Sender: ACCORD
  Company Number: VN-Accord-452617

PATIENT
  Sex: Female

DRUGS (16)
  1. CISPLATIN [Suspect]
     Active Substance: CISPLATIN
     Indication: Gestational trophoblastic tumour
     Dosage: 60 MG/M2 IN 1 L NORMAL SALINE OVER 3 H IV ON DAY 1 FOR 2 CYCLES
     Route: 042
  2. ETOPOSIDE [Suspect]
     Active Substance: ETOPOSIDE
     Indication: Gestational trophoblastic tumour
     Dosage: 150 MG/M2 IN 1 L NORMAL SALINE OVER 1 H IV ON DAY 15 FOR 2 CYCLES
     Route: 042
  3. PACLITAXEL [Suspect]
     Active Substance: PACLITAXEL
     Indication: Gestational trophoblastic tumour
     Dosage: 135 MG/M2 IN 250 ML NORMAL SALINE (NS) OVER 3 H IV ON DAY 1 AND DAY 15 FOR 2 CYCLES
     Route: 042
  4. SODIUM CHLORIDE [Concomitant]
     Active Substance: SODIUM CHLORIDE
     Indication: Gestational trophoblastic tumour
     Route: 042
  5. SODIUM CHLORIDE [Concomitant]
     Active Substance: SODIUM CHLORIDE
     Indication: Malignant hydatidiform mole
     Route: 042
  6. SODIUM CHLORIDE [Concomitant]
     Active Substance: SODIUM CHLORIDE
     Indication: Metastatic choriocarcinoma
     Route: 042
  7. SODIUM CHLORIDE [Concomitant]
     Active Substance: SODIUM CHLORIDE
     Indication: Metastases to lung
     Route: 042
  8. ETOPOSIDE [Suspect]
     Active Substance: ETOPOSIDE
     Indication: Malignant hydatidiform mole
     Dosage: 150 MG/M2 IN 1 L NORMAL SALINE OVER 1 H IV ON DAY 15 FOR 2 CYCLES
     Route: 042
  9. ETOPOSIDE [Suspect]
     Active Substance: ETOPOSIDE
     Indication: Metastatic choriocarcinoma
     Dosage: 150 MG/M2 IN 1 L NORMAL SALINE OVER 1 H IV ON DAY 15 FOR 2 CYCLES
     Route: 042
  10. ETOPOSIDE [Suspect]
     Active Substance: ETOPOSIDE
     Indication: Metastases to lung
     Dosage: 150 MG/M2 IN 1 L NORMAL SALINE OVER 1 H IV ON DAY 15 FOR 2 CYCLES
     Route: 042
  11. PACLITAXEL [Suspect]
     Active Substance: PACLITAXEL
     Indication: Malignant hydatidiform mole
     Dosage: 135 MG/M2 IN 250 ML NORMAL SALINE (NS) OVER 3 H IV ON DAY 1 AND DAY 15 FOR 2 CYCLES
     Route: 042
  12. PACLITAXEL [Suspect]
     Active Substance: PACLITAXEL
     Indication: Metastatic choriocarcinoma
     Dosage: 135 MG/M2 IN 250 ML NORMAL SALINE (NS) OVER 3 H IV ON DAY 1 AND DAY 15 FOR 2 CYCLES
     Route: 042
  13. PACLITAXEL [Suspect]
     Active Substance: PACLITAXEL
     Indication: Metastases to lung
     Dosage: 135 MG/M2 IN 250 ML NORMAL SALINE (NS) OVER 3 H IV ON DAY 1 AND DAY 15 FOR 2 CYCLES
     Route: 042
  14. CISPLATIN [Suspect]
     Active Substance: CISPLATIN
     Indication: Malignant hydatidiform mole
     Dosage: 60 MG/M2 IN 1 L NORMAL SALINE OVER 3 H IV ON DAY 1 FOR 2 CYCLES
     Route: 042
  15. CISPLATIN [Suspect]
     Active Substance: CISPLATIN
     Indication: Metastatic choriocarcinoma
     Dosage: 60 MG/M2 IN 1 L NORMAL SALINE OVER 3 H IV ON DAY 1 FOR 2 CYCLES
     Route: 042
  16. CISPLATIN [Suspect]
     Active Substance: CISPLATIN
     Indication: Metastases to lung
     Dosage: 60 MG/M2 IN 1 L NORMAL SALINE OVER 3 H IV ON DAY 1 FOR 2 CYCLES
     Route: 042

REACTIONS (2)
  - Anaemia [Unknown]
  - White blood cell count decreased [Unknown]
